FAERS Safety Report 23543996 (Version 1)
Quarter: 2024Q1

REPORT INFORMATION
  Report Type: Spontaneous
  Country: US (occurrence: None)
  Receive Date: 20240216
  Receipt Date: 20240216
  Transmission Date: 20240410
  Serious: Yes (Other)
  Sender: FDA-Public Use
  Company Number: None

PATIENT
  Age: 57 Year
  Sex: Female
  Weight: 47.7 kg

DRUGS (3)
  1. ESTRADIOL [Suspect]
     Active Substance: ESTRADIOL
     Dates: start: 20231225, end: 20240109
  2. DEXAMETHASONE [Concomitant]
     Active Substance: DEXAMETHASONE
  3. LYRICA [Concomitant]
     Active Substance: PREGABALIN

REACTIONS (8)
  - Oedema genital [None]
  - Gait inability [None]
  - Vulval disorder [None]
  - Erythema [None]
  - Pain [None]
  - Skin laceration [None]
  - Dysuria [None]
  - Burning sensation [None]

NARRATIVE: CASE EVENT DATE: 20231227
